FAERS Safety Report 15597724 (Version 2)
Quarter: 2018Q4

REPORT INFORMATION
  Report Type: Spontaneous
  Country: CA (occurrence: CA)
  Receive Date: 20181108
  Receipt Date: 20181119
  Transmission Date: 20190205
  Serious: Yes (Hospitalization, Other)
  Sender: FDA-Public Use
  Company Number: CA-GLAXOSMITHKLINE-CA2018GSK202931

PATIENT
  Age: 12 Day
  Sex: Male
  Weight: 3 kg

DRUGS (10)
  1. ARIPIPRAZOLE. [Suspect]
     Active Substance: ARIPIPRAZOLE
     Dosage: 15 MG, QD
     Route: 064
  2. SERTRALINE [Suspect]
     Active Substance: SERTRALINE HYDROCHLORIDE
     Dosage: 100 MG, QD
     Route: 064
  3. FOLIC ACID. [Concomitant]
     Active Substance: FOLIC ACID
     Indication: PRODUCT USED FOR UNKNOWN INDICATION
     Dosage: UNK
  4. ARIPIPRAZOLE. [Suspect]
     Active Substance: ARIPIPRAZOLE
     Indication: BIPOLAR DISORDER
     Dosage: 15 MG, QD
     Route: 063
  5. ACETAMINOPHEN AND CODEINE [Concomitant]
     Active Substance: ACETAMINOPHEN\CODEINE PHOSPHATE
     Indication: PRODUCT USED FOR UNKNOWN INDICATION
     Dosage: UNK
  6. LAMOTRIGINE. [Suspect]
     Active Substance: LAMOTRIGINE
     Indication: BIPOLAR DISORDER
     Dosage: 250 MG, QD
     Route: 063
  7. LEVOTHYROXINE. [Concomitant]
     Active Substance: LEVOTHYROXINE
     Indication: PRODUCT USED FOR UNKNOWN INDICATION
     Dosage: 50 MG, QD
  8. LAMOTRIGINE. [Suspect]
     Active Substance: LAMOTRIGINE
     Dosage: 250 MG, QD
     Route: 064
  9. SERTRALINE [Suspect]
     Active Substance: SERTRALINE HYDROCHLORIDE
     Indication: BIPOLAR DISORDER
     Dosage: 100 MG, QD
     Route: 063
  10. DOCUSATE [Concomitant]
     Active Substance: DOCUSATE
     Indication: PRODUCT USED FOR UNKNOWN INDICATION
     Dosage: UNK

REACTIONS (21)
  - Hyporesponsive to stimuli [Recovered/Resolved]
  - Livedo reticularis [Recovered/Resolved]
  - Petechiae [Recovered/Resolved]
  - Gangrene [Recovered/Resolved]
  - Necrosis [Recovered/Resolved]
  - Hyponatraemia [Recovered/Resolved]
  - Moaning [Recovered/Resolved]
  - Peripheral artery thrombosis [Recovered/Resolved]
  - Acidosis [Recovered/Resolved]
  - Acute kidney injury [Recovered/Resolved]
  - Partial seizures [Recovered/Resolved]
  - Dehydration [Recovered/Resolved]
  - Foetal exposure during pregnancy [Recovered/Resolved]
  - Weight decreased [Recovered/Resolved]
  - Exposure via breast milk [Recovered/Resolved]
  - Disseminated intravascular coagulation [Recovered/Resolved]
  - Rhabdomyolysis [Recovered/Resolved]
  - Hypovolaemic shock [Recovered/Resolved]
  - Irritability [Recovered/Resolved]
  - Skin turgor decreased [Recovered/Resolved]
  - Somnolence [Recovered/Resolved]
